FAERS Safety Report 10019047 (Version 1)
Quarter: 2014Q1

REPORT INFORMATION
  Report Type: Spontaneous
  Country: US (occurrence: US)
  Receive Date: 20140318
  Receipt Date: 20140318
  Transmission Date: 20141002
  Serious: Yes (Other)
  Sender: FDA-Public Use
  Company Number: US-BRISTOL-MYERS SQUIBB COMPANY-20443172

PATIENT
  Age: 73 Year
  Sex: Female
  Weight: 72.56 kg

DRUGS (8)
  1. BYDUREON [Suspect]
     Indication: TYPE 2 DIABETES MELLITUS
  2. TRAMADOL [Concomitant]
     Route: 048
  3. METHOTREXATE [Concomitant]
     Dosage: TABS
  4. WARFARIN [Concomitant]
     Dosage: TABS
  5. COZAAR [Concomitant]
     Route: 048
  6. CRESTOR [Concomitant]
     Route: 048
  7. CRESTOR [Concomitant]
     Route: 048
  8. CEFADROXIL [Concomitant]
     Indication: URINARY TRACT INFECTION
     Route: 048

REACTIONS (5)
  - Spinal pain [Not Recovered/Not Resolved]
  - Arthritis [Not Recovered/Not Resolved]
  - Urinary tract infection [Not Recovered/Not Resolved]
  - Dehydration [Not Recovered/Not Resolved]
  - Ecchymosis [Recovering/Resolving]
